FAERS Safety Report 5831925-8 (Version None)
Quarter: 2008Q3

REPORT INFORMATION
  Report Type: 
  Country: None (occurrence: None)
  Receive Date: 20080729
  Receipt Date: 20080714
  Transmission Date: 20090109
  Serious: Yes (Other)
  Sender: FDA-Public Use
  Company Number: GB-1166777

PATIENT
  Age: 20 Year
  Sex: Female

DRUGS (3)
  1. TIMOLOL MALEATE [Suspect]
     Indication: GLAUCOMA
     Dosage: TOPICAL
     Route: 061
  2. BRIMONIDINE TARTRATE [Suspect]
     Indication: GLAUCOMA
     Dosage: TOPICAL
     Route: 061
  3. LATANOPROST [Suspect]
     Indication: GLAUCOMA
     Dosage: TOPICAL
     Route: 061

REACTIONS (3)
  - DRUG INEFFECTIVE [None]
  - RETINAL TEAR [None]
  - VITREOUS HAEMORRHAGE [None]
